FAERS Safety Report 4840307-7 (Version None)
Quarter: 2005Q4

REPORT INFORMATION
  Report Type: 
  Country: None (occurrence: None)
  Receive Date: 20051021
  Receipt Date: 20041008
  Transmission Date: 20060501
  Serious: Yes (Hospitalization)
  Sender: FDA-Public Use
  Company Number: 2005PL000080

PATIENT
  Age: 77 Year
  Sex: Female
  Weight: 68.0396 kg

DRUGS (2)
  1. HELIDAC [Suspect]
     Indication: HELICOBACTER INFECTION
     Dosage: 1 CARD; QD; PO
     Route: 048
     Dates: start: 20040827, end: 20040902
  2. AMLODIPINE BESYLATE [Concomitant]

REACTIONS (3)
  - NAUSEA [None]
  - PANCREATITIS [None]
  - VOMITING [None]
